FAERS Safety Report 7998301-3 (Version None)
Quarter: 2011Q4

REPORT INFORMATION
  Report Type: 
  Country: None (occurrence: None)
  Receive Date: 20111221
  Receipt Date: 20110627
  Transmission Date: 20120403
  Serious: No
  Sender: FDA-Public Use
  Company Number: US-GLAXOSMITHKLINE-A0933253A

PATIENT
  Age: 64 Year
  Sex: Male

DRUGS (3)
  1. LOVAZA [Suspect]
     Indication: ARTHRITIS
     Dosage: 1CAP PER DAY
     Route: 048
     Dates: start: 20110530
  2. CELEBREX [Concomitant]
  3. TRAMADOL HCL [Concomitant]

REACTIONS (3)
  - ERUCTATION [None]
  - DRY MOUTH [None]
  - INSOMNIA [None]
